FAERS Safety Report 4696311-5 (Version None)
Quarter: 2005Q2

REPORT INFORMATION
  Report Type: 
  Country: None (occurrence: None)
  Receive Date: 20050621
  Receipt Date: 20050610
  Transmission Date: 20051028
  Serious: Yes (Other)
  Sender: FDA-Public Use
  Company Number: PHEH2005US06605

PATIENT
  Age: 86 Year
  Sex: Male
  Weight: 78 kg

DRUGS (3)
  1. ZOMETA [Suspect]
     Indication: MULTIPLE MYELOMA
     Dosage: 4 MG MONTHLY
     Dates: start: 20040107, end: 20050420
  2. MELPHALAN [Concomitant]
     Dosage: INTERMITTENT
  3. PREDNISONE TAB [Concomitant]
     Dosage: INTERMITTENT

REACTIONS (2)
  - ASEPTIC NECROSIS BONE [None]
  - OSTEONECROSIS [None]
